FAERS Safety Report 6589792-3 (Version None)
Quarter: 2010Q1

REPORT INFORMATION
  Report Type: 
  Country: None (occurrence: None)
  Receive Date: 20100212
  Receipt Date: 20100202
  Transmission Date: 20100710
  Serious: Yes (Hospitalization)
  Sender: FDA-Public Use
  Company Number: 2010-0384

PATIENT
  Age: 87 Year
  Sex: Male
  Weight: 59 kg

DRUGS (1)
  1. APOKYN [Suspect]
     Indication: PARKINSON'S DISEASE
     Dosage: 0.24 ML (0.6 ML,4 IN 1 D), PARENTERAL
     Route: 051
     Dates: start: 20090601, end: 20100101

REACTIONS (1)
  - NEPHROLITHIASIS [None]
